FAERS Safety Report 6669548-3 (Version None)
Quarter: 2010Q2

REPORT INFORMATION
  Report Type: 
  Country: None (occurrence: None)
  Receive Date: 20100406
  Receipt Date: 20100326
  Transmission Date: 20101027
  Serious: Yes (Death, Hospitalization, Other)
  Sender: FDA-Public Use
  Company Number: US-BAXTER-2010BH008193

PATIENT
  Age: 10 Month
  Sex: Male

DRUGS (1)
  1. DIANEAL [Suspect]
     Indication: PERITONEAL DIALYSIS
     Route: 033
     Dates: start: 20091001, end: 20100201

REACTIONS (3)
  - BLOODY PERITONEAL EFFLUENT [None]
  - HEPATIC NEOPLASM MALIGNANT [None]
  - RESPIRATORY FAILURE [None]
